FAERS Safety Report 4530180-9 (Version None)
Quarter: 2004Q4

REPORT INFORMATION
  Report Type: 
  Country: None (occurrence: None)
  Receive Date: 20041215
  Receipt Date: 20041215
  Transmission Date: 20050328
  Serious: Yes (Death)
  Sender: FDA-Public Use
  Company Number: None

PATIENT
  Age: 83 Year
  Sex: Male
  Weight: 86.1834 kg

DRUGS (7)
  1. CELEXA [Suspect]
     Indication: ANXIETY
     Dosage: ONE TABLT  1X 7DAYS ORAL ;  1/2 TABLT  1X/12 DAYS ORAL
     Route: 048
     Dates: start: 20040816, end: 20040905
  2. CELEXA [Suspect]
     Indication: POST PROCEDURAL COMPLICATION
     Dosage: ONE TABLT  1X 7DAYS ORAL ;  1/2 TABLT  1X/12 DAYS ORAL
     Route: 048
     Dates: start: 20040816, end: 20040905
  3. ATIVAN [Concomitant]
  4. METOPROLOL TARTRATE [Concomitant]
  5. COZAAR [Concomitant]
  6. FUROSEMIDE DIURETIC [Concomitant]
  7. ALBUTEROL [Concomitant]

REACTIONS (1)
  - COMPLETED SUICIDE [None]
